FAERS Safety Report 25540888 (Version 1)
Quarter: 2025Q3

REPORT INFORMATION
  Report Type: Spontaneous
  Country: US (occurrence: US)
  Receive Date: 20250710
  Receipt Date: 20250710
  Transmission Date: 20251021
  Serious: Yes (Other)
  Sender: ELI LILLY AND COMPANY
  Company Number: US-ELI_LILLY_AND_COMPANY-US202507003061

PATIENT
  Age: 74 Year
  Sex: Female

DRUGS (12)
  1. MOUNJARO [Suspect]
     Active Substance: TIRZEPATIDE
     Indication: Product used for unknown indication
     Route: 058
  2. MOUNJARO [Suspect]
     Active Substance: TIRZEPATIDE
     Indication: Product used for unknown indication
     Route: 058
  3. MOUNJARO [Suspect]
     Active Substance: TIRZEPATIDE
     Indication: Product used for unknown indication
     Route: 058
  4. MOUNJARO [Suspect]
     Active Substance: TIRZEPATIDE
     Indication: Product used for unknown indication
     Route: 058
  5. MOUNJARO [Suspect]
     Active Substance: TIRZEPATIDE
     Indication: Product used for unknown indication
     Route: 058
     Dates: end: 202506
  6. MOUNJARO [Suspect]
     Active Substance: TIRZEPATIDE
     Indication: Product used for unknown indication
     Route: 058
     Dates: end: 202506
  7. MOUNJARO [Suspect]
     Active Substance: TIRZEPATIDE
     Indication: Product used for unknown indication
     Route: 058
     Dates: end: 202506
  8. MOUNJARO [Suspect]
     Active Substance: TIRZEPATIDE
     Indication: Product used for unknown indication
     Route: 058
     Dates: end: 202506
  9. MOUNJARO [Suspect]
     Active Substance: TIRZEPATIDE
     Route: 058
     Dates: start: 20250701
  10. MOUNJARO [Suspect]
     Active Substance: TIRZEPATIDE
     Route: 058
     Dates: start: 20250701
  11. MOUNJARO [Suspect]
     Active Substance: TIRZEPATIDE
     Route: 058
     Dates: start: 20250701
  12. MOUNJARO [Suspect]
     Active Substance: TIRZEPATIDE
     Route: 058
     Dates: start: 20250701

REACTIONS (1)
  - Breast cancer [Unknown]
